FAERS Safety Report 5612150-2 (Version None)
Quarter: 2008Q1

REPORT INFORMATION
  Report Type: 
  Country: None (occurrence: None)
  Receive Date: 20080204
  Receipt Date: 20080129
  Transmission Date: 20080703
  Serious: Yes (Hospitalization)
  Sender: FDA-Public Use
  Company Number: US-BAYER-200713837BCC

PATIENT
  Age: 61 Year
  Sex: Male
  Weight: 95 kg

DRUGS (4)
  1. ASPIRIN [Suspect]
     Indication: ARTHRITIS
     Route: 048
  2. ASPIRIN TAB [Suspect]
     Indication: DRUG USE FOR UNKNOWN INDICATION
  3. SPECIAL VITAMINS [Concomitant]
     Indication: RENAL IMPAIRMENT
  4. CALCIUM GLUCONATE [Concomitant]
     Indication: RENAL IMPAIRMENT

REACTIONS (2)
  - BLOOD PRESSURE INCREASED [None]
  - HAEMORRHAGE [None]
